FAERS Safety Report 8654417 (Version 3)
Quarter: 2013Q1

REPORT INFORMATION
  Report Type: Spontaneous
  Country: US (occurrence: US)
  Receive Date: 20120709
  Receipt Date: 20130103
  Transmission Date: 20140127
  Serious: Yes (Hospitalization)
  Sender: FDA-Public Use
  Company Number: US-BAYER-2012-067716

PATIENT
  Age: 43 Year
  Sex: Female
  Weight: 63.04 kg

DRUGS (12)
  1. YAZ [Suspect]
     Indication: ACNE
     Dosage: UNK
     Dates: start: 200701, end: 201203
  2. ADVAIR [Concomitant]
  3. OTHER ANTIDEPRESSANTS [Concomitant]
     Indication: DEPRESSION
     Dosage: 20 MG, QD
     Dates: start: 201111
  4. PREDNISONE [Concomitant]
     Indication: ECZEMA
  5. CLONAZEPAM [Concomitant]
     Indication: ANXIETY
     Dosage: UNK
     Dates: start: 2003
  6. RELPAX [Concomitant]
  7. INDOMETHACIN [Concomitant]
     Dosage: 25 MG, UNK
  8. TERCONAZOLE [Concomitant]
     Dosage: 0.8 %, UNK
     Route: 067
  9. ALPRAZOLAM [Concomitant]
     Dosage: 0.25 MG, UNK
  10. BIOTIN [Concomitant]
     Dosage: 800 MCG, UNK
     Route: 048
  11. IBUPROFEN [Concomitant]
     Dosage: 400 MG, EVERY 6 HOURS PRN
     Route: 048
  12. VIIBRYD [Concomitant]
     Indication: DEPRESSION
     Dosage: 40 MG, DAILY
     Route: 048

REACTIONS (4)
  - Pulmonary embolism [Recovered/Resolved]
  - Hypersensitivity [None]
  - Injury [Recovered/Resolved]
  - Emotional distress [None]
